FAERS Safety Report 7249993-8 (Version None)
Quarter: 2011Q1

REPORT INFORMATION
  Report Type: 
  Country: None (occurrence: None)
  Receive Date: 20110119
  Receipt Date: 20110119
  Transmission Date: 20110831
  Serious: Yes (Other)
  Sender: FDA-Public Use
  Company Number: None

PATIENT
  Sex: Female
  Weight: 68.6 kg

DRUGS (1)
  1. AMLODIPINE [Suspect]
     Indication: HYPERTENSION
     Dosage: 1 DAILY
     Dates: start: 20070101

REACTIONS (4)
  - DIZZINESS [None]
  - PRODUCT SUBSTITUTION ISSUE [None]
  - NAUSEA [None]
  - UNEVALUABLE EVENT [None]
